FAERS Safety Report 8833354 (Version 2)
Quarter: 2014Q1

REPORT INFORMATION
  Report Type: Spontaneous
  Country: US (occurrence: US)
  Receive Date: 20121010
  Receipt Date: 20140313
  Transmission Date: 20141002
  Serious: Yes (Hospitalization)
  Sender: FDA-Public Use
  Company Number: US-ASTRAZENECA-2012SE76324

PATIENT
  Age: 90 Year
  Sex: Female
  Weight: 65.3 kg

DRUGS (10)
  1. ATACAND [Suspect]
     Indication: HYPERTENSION
     Route: 048
  2. NEXIUM [Suspect]
     Indication: GASTROOESOPHAGEAL REFLUX DISEASE
     Route: 048
  3. LISINOPRIL [Suspect]
     Route: 048
  4. METOPROLOL TARTRATE [Suspect]
     Route: 048
  5. DRONEDARONE [Concomitant]
  6. WARFARIN [Concomitant]
  7. ECOTRIN [Concomitant]
  8. ZETIA [Concomitant]
  9. BUMETAMIDE [Concomitant]
  10. PREVACHOL [Concomitant]

REACTIONS (7)
  - Cardiac disorder [Unknown]
  - Pain [Unknown]
  - Atrial fibrillation [Unknown]
  - Dyspnoea [Unknown]
  - Body height decreased [Unknown]
  - Deafness [Unknown]
  - Memory impairment [Unknown]
